FAERS Safety Report 9946167 (Version 1)
Quarter: 2014Q1

REPORT INFORMATION
  Report Type: Spontaneous
  Country: US (occurrence: US)
  Receive Date: 20140303
  Receipt Date: 20140303
  Transmission Date: 20141002
  Serious: No
  Sender: FDA-Public Use
  Company Number: US-AMGEN-USASP2013086601

PATIENT
  Age: 61 Year
  Sex: Female
  Weight: 74.83 kg

DRUGS (10)
  1. ENBREL [Suspect]
     Indication: PRODUCT USED FOR UNKNOWN INDICATION
     Dosage: 50 MG, UNK
     Route: 065
  2. OXYCODONE [Concomitant]
     Dosage: 5 MG, UNK
  3. OXYCONTIN [Concomitant]
     Dosage: 10 MG, CR
  4. FLONASE                            /00908302/ [Concomitant]
     Dosage: 0.05 %, UNK
  5. CLARITIN-D [Concomitant]
     Dosage: 10 - 240 MG, UNK
  6. FOSAMAX [Concomitant]
     Dosage: 10 MG, UNK
  7. BACLOFEN [Concomitant]
     Dosage: 10 MG, UNK
  8. CYMBALTA [Concomitant]
     Dosage: 20 MG, UNK
  9. PREDNISONE [Concomitant]
     Dosage: 10 MG, UNK
  10. ZANTAC 75 DISSOLVE [Concomitant]
     Dosage: UNK

REACTIONS (8)
  - Activities of daily living impaired [Unknown]
  - Arthralgia [Unknown]
  - Joint swelling [Unknown]
  - Erythema [Unknown]
  - Joint warmth [Unknown]
  - Weight increased [Unknown]
  - Disturbance in attention [Unknown]
  - Malaise [Unknown]
